FAERS Safety Report 4709949-3 (Version None)
Quarter: 2005Q3

REPORT INFORMATION
  Report Type: 
  Country: None (occurrence: None)
  Receive Date: 20050708
  Receipt Date: 20050623
  Transmission Date: 20060218
  Serious: Yes (Disabling)
  Sender: FDA-Public Use
  Company Number: GB-BOEHRINGER INGELHEIM PHARMACEUTICALS, INC.-2005-UK-01149UK

PATIENT
  Sex: Male
  Weight: 53 kg

DRUGS (7)
  1. TIPRANAVIR/RITONAVIR [Suspect]
     Indication: HIV INFECTION
     Route: 048
     Dates: start: 20040707, end: 20050217
  2. ENFURVIMIDE [Concomitant]
     Indication: HIV INFECTION
     Route: 051
     Dates: start: 20040707, end: 20050217
  3. TENOFOVIR [Concomitant]
     Indication: HIV INFECTION
     Route: 048
     Dates: start: 20010724, end: 20050621
  4. LAMIVUDINE [Concomitant]
     Indication: HIV INFECTION
     Route: 048
     Dates: start: 20010410
  5. AZITHEOMICIN [Concomitant]
     Route: 048
     Dates: start: 20020101
  6. VALGANCICLOVIR [Concomitant]
     Route: 048
     Dates: start: 20030101
  7. ACETAMINOPHEN W/ CODEINE [Concomitant]
     Route: 048
     Dates: start: 20000101

REACTIONS (2)
  - DRUG EFFECT DECREASED [None]
  - DRUG INEFFECTIVE [None]
